FAERS Safety Report 5212930-1 (Version None)
Quarter: 2007Q1

REPORT INFORMATION
  Report Type: 
  Country: None (occurrence: None)
  Receive Date: 20070118
  Receipt Date: 20070118
  Transmission Date: 20070707
  Serious: No
  Sender: FDA-Public Use
  Company Number: None

PATIENT

DRUGS (2)
  1. ZOFRAN [Suspect]
  2. PROMETHAZINE HCL [Suspect]

REACTIONS (8)
  - ERYTHEMA [None]
  - GANGRENE [None]
  - MEDICATION ERROR [None]
  - OEDEMA PERIPHERAL [None]
  - PAIN [None]
  - PARAESTHESIA [None]
  - SKIN WARM [None]
  - WRONG DRUG ADMINISTERED [None]
